FAERS Safety Report 7262981-0 (Version None)
Quarter: 2011Q1

REPORT INFORMATION
  Report Type: 
  Country: None (occurrence: None)
  Receive Date: 20110130
  Receipt Date: 20100928
  Transmission Date: 20110831
  Serious: No
  Sender: FDA-Public Use
  Company Number: US-ABBOTT-10P-163-0676253-00

PATIENT
  Sex: Female

DRUGS (7)
  1. HUMIRA [Suspect]
     Indication: PSORIATIC ARTHROPATHY
     Dosage: SWITCHED TO WEEKLY
     Dates: start: 20090101, end: 20100301
  2. PAXIL [Concomitant]
     Indication: DEPRESSION
  3. HUMIRA [Suspect]
     Dates: start: 20100301
  4. ATARAX [Concomitant]
     Indication: PRURITUS
  5. MOTRIN [Concomitant]
     Indication: PAIN
  6. METHOTREXATE [Concomitant]
     Indication: PSORIATIC ARTHROPATHY
  7. GLUCOPHAGE [Concomitant]
     Indication: DIABETES MELLITUS

REACTIONS (4)
  - INJECTION SITE PAIN [None]
  - INJECTION SITE HAEMORRHAGE [None]
  - DEVICE MALFUNCTION [None]
  - DRUG INEFFECTIVE [None]
